FAERS Safety Report 6374308-7 (Version None)
Quarter: 2009Q3

REPORT INFORMATION
  Report Type: 
  Country: None (occurrence: None)
  Receive Date: 20090924
  Receipt Date: 20090922
  Transmission Date: 20100115
  Serious: Yes (Life-Threatening, Other)
  Sender: FDA-Public Use
  Company Number: CA-ROXANE LABORATORIES, INC.-2009-RO-00973RO

PATIENT
  Age: 66 Year
  Sex: Female

DRUGS (2)
  1. MORPHINE [Suspect]
     Indication: ANALGESIA
  2. NARCAN [Concomitant]
     Indication: RESPIRATORY ARREST

REACTIONS (2)
  - RESPIRATORY ARREST [None]
  - SLEEP APNOEA SYNDROME [None]
